FAERS Safety Report 6610774-7 (Version None)
Quarter: 2010Q1

REPORT INFORMATION
  Report Type: 
  Country: None (occurrence: None)
  Receive Date: 20100302
  Receipt Date: 20100222
  Transmission Date: 20100710
  Serious: Yes (Other)
  Sender: FDA-Public Use
  Company Number: B0635632A

PATIENT
  Sex: Male

DRUGS (4)
  1. RELENZA [Suspect]
     Indication: INFLUENZA
     Dosage: 20MG TWICE PER DAY
     Route: 055
     Dates: start: 20100220
  2. SINGULAIR [Concomitant]
     Indication: ASTHMA
     Dosage: 5MG PER DAY
     Route: 048
  3. MEDICON [Concomitant]
     Dosage: 15MG PER DAY
     Route: 048
  4. MUCODYNE [Concomitant]
     Dosage: 500MG TWICE PER DAY
     Route: 048

REACTIONS (1)
  - HALLUCINATION [None]
